FAERS Safety Report 18167604 (Version 1)
Quarter: 2020Q3

REPORT INFORMATION
  Report Type: Spontaneous
  Country: US (occurrence: US)
  Receive Date: 20200818
  Receipt Date: 20200818
  Transmission Date: 20201103
  Serious: Yes (Death)
  Sender: FDA-Public Use
  Company Number: None

PATIENT
  Age: 44 Year
  Sex: Female

DRUGS (2)
  1. CARBOPLATIN MG/ML [Suspect]
     Active Substance: CARBOPLATIN
     Indication: OVARIAN CANCER
     Dosage: ?          OTHER ROUTE:IV?
     Route: 042
     Dates: start: 20200610, end: 20200720
  2. PACLITAXEL 150MG/25ML [Suspect]
     Active Substance: PACLITAXEL
     Indication: OVARIAN CANCER
     Dosage: ?          OTHER ROUTE:IV?
     Route: 042
     Dates: start: 20200610, end: 20200720

REACTIONS (1)
  - Death [None]

NARRATIVE: CASE EVENT DATE: 20200817
